FAERS Safety Report 22074515 (Version 1)
Quarter: 2023Q1

REPORT INFORMATION
  Report Type: Spontaneous
  Country: US (occurrence: None)
  Receive Date: 20230308
  Receipt Date: 20230308
  Transmission Date: 20230418
  Serious: Yes (Hospitalization)
  Sender: FDA-Public Use
  Company Number: None

PATIENT

DRUGS (3)
  1. NEXTERONE [Suspect]
     Active Substance: AMIODARONE HYDROCHLORIDE
     Route: 042
  2. CARDENE [Suspect]
     Active Substance: NICARDIPINE HYDROCHLORIDE
  3. MYXREDLIN [Suspect]
     Active Substance: INSULIN HUMAN
     Dosage: OTHER STRENGTH : 100 UNTS PER 100ML;?
     Route: 042

REACTIONS (5)
  - Product packaging confusion [None]
  - Intercepted product dispensing error [None]
  - Circumstance or information capable of leading to medication error [None]
  - Wrong drug [None]
  - Product storage error [None]
